FAERS Safety Report 6732050-4 (Version None)
Quarter: 2010Q2

REPORT INFORMATION
  Report Type: 
  Country: None (occurrence: None)
  Receive Date: 20100519
  Receipt Date: 20100512
  Transmission Date: 20101027
  Serious: Yes (Other)
  Sender: FDA-Public Use
  Company Number: IN-ASTRAZENECA-2010SE18500

PATIENT
  Age: 8559 Day
  Sex: Male
  Weight: 54.5 kg

DRUGS (1)
  1. QUETIAPINE XR [Suspect]
     Indication: SCHIZOPHRENIA
     Route: 048
     Dates: start: 20100226, end: 20100407

REACTIONS (1)
  - LEFT VENTRICULAR DYSFUNCTION [None]
